FAERS Safety Report 5407790-X (Version None)
Quarter: 2007Q3

REPORT INFORMATION
  Report Type: 
  Country: None (occurrence: None)
  Receive Date: 20070803
  Receipt Date: 20070719
  Transmission Date: 20080115
  Serious: Yes (Death)
  Sender: FDA-Public Use
  Company Number: 2007S1006700

PATIENT
  Sex: Female

DRUGS (3)
  1. PROPOXYPHENE HCL [Suspect]
     Indication: BACK PAIN
     Dosage: ORAL
     Route: 048
  2. PROPOXYPHENE HCL [Suspect]
     Indication: PAIN IN EXTREMITY
     Dosage: ORAL
     Route: 048
  3. PROPOXYPHENE HCL [Suspect]
     Indication: PROCEDURAL PAIN
     Dosage: ORAL
     Route: 048

REACTIONS (1)
  - DRUG TOXICITY [None]
